FAERS Safety Report 5342198-7 (Version None)
Quarter: 2007Q2

REPORT INFORMATION
  Report Type: 
  Country: None (occurrence: None)
  Receive Date: 20070601
  Receipt Date: 20070521
  Transmission Date: 20071010
  Serious: Yes (Hospitalization)
  Sender: FDA-Public Use
  Company Number: NL-ASTRAZENECA-2007AC00905

PATIENT
  Age: 18150 Day
  Sex: Female
  Weight: 85 kg

DRUGS (13)
  1. NOLVADEX [Suspect]
     Indication: BREAST CANCER
     Route: 048
     Dates: start: 20070428
  2. CLOZAPINE [Suspect]
     Indication: SCHIZOPHRENIA, PARANOID TYPE
     Dates: start: 20050101
  3. CISORDINOL [Suspect]
     Indication: SCHIZOPHRENIA, PARANOID TYPE
     Dates: start: 20070101
  4. PANTOZOL [Concomitant]
  5. MAGNESIUM HYDROXIDE TAB [Concomitant]
     Dosage: 724 MG PER CYCLE
  6. MOVICOLON [Concomitant]
  7. IBUPROFEN [Concomitant]
  8. PARACETAMOL [Concomitant]
  9. AKINETON [Concomitant]
  10. OXAZEPAM [Concomitant]
  11. NITRAZEPAMUM [Concomitant]
  12. DORMICUM [Concomitant]
  13. PROMETHAZINE [Concomitant]

REACTIONS (1)
  - SUICIDE ATTEMPT [None]
